FAERS Safety Report 16168098 (Version 3)
Quarter: 2019Q4

REPORT INFORMATION
  Report Type: Spontaneous
  Country: US (occurrence: US)
  Receive Date: 20190408
  Receipt Date: 20191226
  Transmission Date: 20200122
  Serious: No
  Sender: FDA-Public Use
  Company Number: US-PFIZER INC-2015302007

PATIENT
  Age: 75 Year
  Sex: Female

DRUGS (21)
  1. SIMVASTATIN. [Concomitant]
     Active Substance: SIMVASTATIN
     Dosage: 10 MG, ONCE DAILY (EVERY EVENING)
     Route: 048
  2. LYRICA [Suspect]
     Active Substance: PREGABALIN
     Dosage: 250 MG, DAILY (50 MG EVERY MORNING AND TWO 100 MG CAPSULES EVERY BEDTIME)
     Route: 048
  3. TYLENOL [Concomitant]
     Active Substance: ACETAMINOPHEN
     Dosage: 650 MG, AS NEEDED (EVERY 4 HOURS )
     Route: 048
  4. LISINOPRIL. [Concomitant]
     Active Substance: LISINOPRIL
     Dosage: 10 MG, DAILY
     Route: 048
  5. WELLBUTRIN XL [Concomitant]
     Active Substance: BUPROPION HYDROCHLORIDE
     Dosage: 150 MG, DAILY
     Route: 048
  6. LYRICA [Suspect]
     Active Substance: PREGABALIN
     Dosage: 200 MG, ONCE A DAILY (TAKE 2 CAPSULE BY ORAL ROUTE EVERY BEDTIME)
     Route: 048
  7. ASPIRIN. [Concomitant]
     Active Substance: ASPIRIN
     Dosage: 325 MG, DAILY
     Route: 048
  8. CALCIUM MAGNESIUM + D [Concomitant]
     Dosage: 1 DF, TWICE DAILY
     Route: 048
  9. POLYETHYLENE GLYCOL 3350. [Concomitant]
     Active Substance: POLYETHYLENE GLYCOL 3350
     Dosage: 1 DF, AS NEEDED (1 CAPFUL IN LIQUID DAILY INCREASE BY ONE CAPFUL EVERY 5 DAYS; MAXIMUM OF 4 CAPFULS)
     Route: 048
  10. LYRICA [Suspect]
     Active Substance: PREGABALIN
     Dosage: 1 DF, TWICE DAILY (1 AT NIGHT AND 1 IN THE MORNING)
     Route: 048
  11. VITAMIN C [Concomitant]
     Active Substance: ASCORBIC ACID
     Dosage: 500 MG, TWICE DAILY (IN THE MORNING AND AT BEDTIME)
  12. COENZYME Q10 [Concomitant]
     Active Substance: UBIDECARENONE
     Dosage: 100 MG, ONCE DAILY
     Route: 048
  13. OMEPRAZOLE. [Concomitant]
     Active Substance: OMEPRAZOLE
     Dosage: 20 MG, DAILY (EVERYDAY BEFORE A MEAL)
     Route: 048
  14. FORTEO [Concomitant]
     Active Substance: TERIPARATIDE
     Dosage: 20 UG, DAILY (0.08 ML)
     Route: 058
  15. LYRICA [Suspect]
     Active Substance: PREGABALIN
     Indication: FIBROMYALGIA
     Dosage: 3 DF, DAILY (1 CAPSULE EVERY MORNING AND 2 CAPSULES AT NIGHT)
     Route: 048
  16. VITAMIN D 2000 [Concomitant]
     Active Substance: VITAMIN D NOS
     Dosage: 2000 IU, ONCE DAILY
     Route: 048
  17. LYRICA [Suspect]
     Active Substance: PREGABALIN
     Indication: MYALGIA
     Dosage: 100 MG, TWICE DAILY
     Route: 048
  18. LYRICA [Suspect]
     Active Substance: PREGABALIN
     Indication: MYOSITIS
     Dosage: 25 MG, TWICE DAILY
     Route: 048
  19. LYRICA [Suspect]
     Active Substance: PREGABALIN
     Dosage: 50 MG, ONCE A DAY, [1 CAPSULE BY ORAL ROUTE EVERY MORNING]
     Route: 048
  20. METOPROLOL SUCC ER [Concomitant]
     Active Substance: METOPROLOL SUCCINATE
     Dosage: 50 MG, DAILY
     Route: 048
  21. TRAZODONE [Concomitant]
     Active Substance: TRAZODONE HYDROCHLORIDE
     Indication: INSOMNIA
     Dosage: ONE-HALF TO FOUR DF, ONCE DAILY (AT BEDTIME)
     Route: 048

REACTIONS (2)
  - Pain in extremity [Unknown]
  - Gait disturbance [Unknown]
